FAERS Safety Report 21986296 (Version 1)
Quarter: 2023Q1

REPORT INFORMATION
  Report Type: Spontaneous
  Country: US (occurrence: None)
  Receive Date: 20230210
  Receipt Date: 20230210
  Transmission Date: 20230417
  Serious: Yes (Hospitalization)
  Sender: FDA-Public Use
  Company Number: None

PATIENT
  Sex: Male

DRUGS (1)
  1. DOFETILIDE [Suspect]
     Active Substance: DOFETILIDE
     Indication: Atrial fibrillation
     Dosage: 500MG TWICE DAILY ORAL?
     Route: 048
     Dates: start: 20201002

REACTIONS (3)
  - Pneumonia [None]
  - Drug interaction [None]
  - Therapy cessation [None]
